FAERS Safety Report 7256866-3 (Version None)
Quarter: 2011Q1

REPORT INFORMATION
  Report Type: 
  Country: None (occurrence: None)
  Receive Date: 20110129
  Receipt Date: 20100621
  Transmission Date: 20110831
  Serious: No
  Sender: FDA-Public Use
  Company Number: US-ABBOTT-10P-163-0652524-00

PATIENT
  Age: 58 Year
  Sex: Female

DRUGS (3)
  1. LOMOTIL [Concomitant]
     Indication: PRODUCT USED FOR UNKNOWN INDICATION
     Dosage: 2 TABLETS AT EACH MEAL AND AT BED TIME
  2. MIRAPEX [Concomitant]
     Indication: PRODUCT USED FOR UNKNOWN INDICATION
     Dosage: 1 TAB IN AFTERNOON AND 1 TAB IN EVENING
  3. HUMIRA [Suspect]
     Indication: CROHN'S DISEASE
     Dates: start: 20100401

REACTIONS (7)
  - OROPHARYNGEAL PAIN [None]
  - THROAT IRRITATION [None]
  - SINUS CONGESTION [None]
  - COUGH [None]
  - LACRIMATION INCREASED [None]
  - MUSCLE SPASMS [None]
  - PYREXIA [None]
